FAERS Safety Report 23178999 (Version 1)
Quarter: 2023Q4

REPORT INFORMATION
  Report Type: Spontaneous
  Country: US (occurrence: US)
  Receive Date: 20231113
  Receipt Date: 20231113
  Transmission Date: 20240110
  Serious: Yes (Other)
  Sender: FDA-Public Use
  Company Number: US-PFIZER INC-202300359168

PATIENT
  Age: 15 Year
  Sex: Female
  Weight: 43.09 kg

DRUGS (1)
  1. OXBRYTA [Suspect]
     Active Substance: VOXELOTOR
     Dosage: 1000 MG, DAILY

REACTIONS (6)
  - Blood bilirubin increased [Unknown]
  - Cholelithiasis [Unknown]
  - Ocular icterus [Unknown]
  - Chromaturia [Unknown]
  - Haemoglobin increased [Unknown]
  - Intentional product misuse [Unknown]
